FAERS Safety Report 9200097 (Version 1)
Quarter: 2013Q1

REPORT INFORMATION
  Report Type: Spontaneous
  Country: IT (occurrence: IT)
  Receive Date: 20130329
  Receipt Date: 20130329
  Transmission Date: 20140127
  Serious: Yes (Other)
  Sender: FDA-Public Use
  Company Number: IT-ROCHE-1208515

PATIENT
  Sex: 0

DRUGS (3)
  1. SOMATROPIN [Suspect]
     Indication: ARNOLD-CHIARI MALFORMATION
     Route: 065
  2. SOMATROPIN [Suspect]
     Indication: GROWTH HORMONE DEFICIENCY
  3. SOMATROPIN [Suspect]
     Indication: OFF LABEL USE

REACTIONS (2)
  - Disease progression [Unknown]
  - Syringomyelia [Unknown]
